FAERS Safety Report 5225048-9 (Version None)
Quarter: 2007Q1

REPORT INFORMATION
  Report Type: 
  Country: None (occurrence: None)
  Receive Date: 20070131
  Receipt Date: 20070126
  Transmission Date: 20070707
  Serious: Yes (Life-Threatening, Hospitalization)
  Sender: FDA-Public Use
  Company Number: ES-GLAXOSMITHKLINE-B0456255A

PATIENT
  Age: 61 Year
  Sex: Male

DRUGS (6)
  1. AUGMENTIN '125' [Suspect]
     Indication: PULMONARY TUBERCULOSIS
     Route: 048
     Dates: start: 20060112
  2. ZYVOX [Suspect]
     Indication: PULMONARY TUBERCULOSIS
     Dosage: 600MG TWICE PER DAY
     Route: 048
     Dates: start: 20060112, end: 20060608
  3. CLARITROMICINA [Suspect]
     Indication: DRUG USE FOR UNKNOWN INDICATION
     Dosage: 500MG TWICE PER DAY
     Route: 048
     Dates: start: 20060112
  4. AMERIDE [Suspect]
     Indication: PULMONARY TUBERCULOSIS
     Route: 048
     Dates: start: 20060112
  5. MYAMBUTOL [Concomitant]
     Indication: PULMONARY TUBERCULOSIS
     Dosage: 400MG THREE TIMES PER DAY
     Route: 048
     Dates: start: 20060112
  6. MOXIFLOXACIN HCL [Concomitant]
     Indication: PULMONARY TUBERCULOSIS
     Dosage: 400MG PER DAY
     Route: 048
     Dates: start: 20060112

REACTIONS (2)
  - ANAEMIA [None]
  - LEUKOPENIA [None]
